FAERS Safety Report 9474090 (Version 1)
Quarter: 2013Q3

REPORT INFORMATION
  Report Type: Spontaneous
  Country: DE (occurrence: DE)
  Receive Date: 20130823
  Receipt Date: 20130823
  Transmission Date: 20140515
  Serious: Yes (Other)
  Sender: FDA-Public Use
  Company Number: DE-ACTAVIS-2013-15255

PATIENT
  Age: 53 Year
  Sex: Male

DRUGS (6)
  1. GEMCITABINE (UNKNOWN) [Suspect]
     Indication: DUCTAL ADENOCARCINOMA OF PANCREAS
     Dosage: UNK
     Route: 065
     Dates: start: 201210, end: 20130325
  2. MCP [Concomitant]
     Indication: PRODUCT USED FOR UNKNOWN INDICATION
     Dosage: 1 DF DOSAGE FORM DOSAGE(S)=3 INTERVAL= 1 DAY(S)
  3. TAVOR [Concomitant]
     Indication: PRODUCT USED FOR UNKNOWN INDICATION
     Dosage: 0.5 MG MILLIGRAM(S) DOSAGE(S)=2 INTERVAL= 1 DAY(S)
  4. PARACODIN [Concomitant]
     Indication: PRODUCT USED FOR UNKNOWN INDICATION
     Dosage: 1 DF DOSAGE FORM DOSAGE(S)=3 INTERVAL= 1 DAY(S)
  5. HCT [Concomitant]
     Indication: PRODUCT USED FOR UNKNOWN INDICATION
     Dosage: 25 DF DOSAGE FORM DOSAGE(S)=1 INTERVAL= 1 DAY(S)
  6. ALDACTONE [Concomitant]
     Indication: PRODUCT USED FOR UNKNOWN INDICATION
     Dosage: 100 MG MILLIGRAM(S) DOSAGE(S)=1 INTERVAL= 1 DAY(S)

REACTIONS (5)
  - Capillary leak syndrome [Recovering/Resolving]
  - Abdominal pain [Recovering/Resolving]
  - Pericardial effusion [Recovering/Resolving]
  - Pleural effusion [Recovering/Resolving]
  - Vomiting [Recovering/Resolving]
